FAERS Safety Report 20091626 (Version 1)
Quarter: 2021Q4

REPORT INFORMATION
  Report Type: Spontaneous
  Country: US (occurrence: None)
  Receive Date: 20211119
  Receipt Date: 20211119
  Transmission Date: 20220303
  Serious: Yes (Death)
  Sender: FDA-Public Use
  Company Number: None

PATIENT
  Age: 75 Year
  Sex: Male

DRUGS (1)
  1. MOZOBIL [Suspect]
     Active Substance: PLERIXAFOR
     Indication: Diffuse large B-cell lymphoma
     Dosage: FREQUENCY : DAILY;?
     Route: 058
     Dates: start: 20201125, end: 20210326

REACTIONS (1)
  - Death [None]

NARRATIVE: CASE EVENT DATE: 20210326
